FAERS Safety Report 5962637-8 (Version None)
Quarter: 2008Q4

REPORT INFORMATION
  Report Type: 
  Country: None (occurrence: None)
  Receive Date: 20081121
  Receipt Date: 20081118
  Transmission Date: 20090506
  Serious: Yes (Death, Hospitalization, Other)
  Sender: FDA-Public Use
  Company Number: PHHY2008BR28767

PATIENT
  Age: 76 Year
  Sex: Female
  Weight: 70 kg

DRUGS (5)
  1. EXELON [Suspect]
     Indication: MEMORY IMPAIRMENT
     Dosage: 1 CAPSULE MORNING, 1 CAPSULE EVENING
     Route: 048
     Dates: start: 20060101
  2. EXELON [Suspect]
     Indication: DEMENTIA ALZHEIMER'S TYPE
  3. HYGROTON [Suspect]
     Indication: HYPERTENSION
     Dosage: 1 DF, QD
     Route: 048
  4. CHEMOTHERAPEUTICS NOS [Suspect]
     Indication: ENDOMETRIAL CANCER
  5. ENALAPRIL MALEATE [Concomitant]
     Indication: HYPERTENSION
     Route: 048

REACTIONS (8)
  - ANGIOPLASTY [None]
  - CARDIAC DISORDER [None]
  - CATHETERISATION CARDIAC [None]
  - ENDOMETRIAL NEOPLASM [None]
  - IMMUNE SYSTEM DISORDER [None]
  - INFECTION [None]
  - OOPHORECTOMY [None]
  - UTERINE TUMOUR EXCISION [None]
